FAERS Safety Report 25151849 (Version 2)
Quarter: 2025Q2

REPORT INFORMATION
  Report Type: Spontaneous
  Country: CN (occurrence: CN)
  Receive Date: 20250402
  Receipt Date: 20250409
  Transmission Date: 20250717
  Serious: Yes (Life-Threatening, Other)
  Sender: PFIZER
  Company Number: CN-MLMSERVICE-20250321-PI454418-00133-1

PATIENT
  Age: 22 Year
  Sex: Female

DRUGS (10)
  1. EPIRUBICIN HYDROCHLORIDE [Suspect]
     Active Substance: EPIRUBICIN HYDROCHLORIDE
     Indication: Ewing^s sarcoma
  2. EPIRUBICIN HYDROCHLORIDE [Suspect]
     Active Substance: EPIRUBICIN HYDROCHLORIDE
     Indication: Renal cancer
  3. ETOPOSIDE [Suspect]
     Active Substance: ETOPOSIDE
     Indication: Ewing^s sarcoma
  4. ETOPOSIDE [Suspect]
     Active Substance: ETOPOSIDE
     Indication: Renal cancer
  5. VINCRISTINE [Suspect]
     Active Substance: VINCRISTINE
     Indication: Ewing^s sarcoma
  6. VINCRISTINE [Suspect]
     Active Substance: VINCRISTINE
     Indication: Renal cancer
  7. CYCLOPHOSPHAMIDE [Suspect]
     Active Substance: CYCLOPHOSPHAMIDE
     Indication: Ewing^s sarcoma
  8. CYCLOPHOSPHAMIDE [Suspect]
     Active Substance: CYCLOPHOSPHAMIDE
     Indication: Renal cancer
  9. IFOSFAMIDE [Suspect]
     Active Substance: IFOSFAMIDE
     Indication: Ewing^s sarcoma
  10. IFOSFAMIDE [Suspect]
     Active Substance: IFOSFAMIDE
     Indication: Renal cancer

REACTIONS (3)
  - Agranulocytosis [Unknown]
  - Myelosuppression [Unknown]
  - Off label use [Unknown]
